FAERS Safety Report 17344633 (Version 1)
Quarter: 2020Q1

REPORT INFORMATION
  Report Type: Spontaneous
  Country: US (occurrence: US)
  Receive Date: 20200129
  Receipt Date: 20200129
  Transmission Date: 20200409
  Serious: No
  Sender: FDA-Public Use
  Company Number: US-ALLERGAN-1942575US

PATIENT
  Age: 70 Year
  Sex: Female

DRUGS (2)
  1. JUVEDERM [Concomitant]
     Active Substance: HYALURONIC ACID
     Dosage: UNK, SINGLE
  2. BOTOX [Suspect]
     Active Substance: ONABOTULINUMTOXINA
     Indication: SKIN WRINKLING
     Dosage: 20 UNITS, SINGLE
     Dates: start: 201909, end: 201909

REACTIONS (2)
  - Patient dissatisfaction with treatment [Unknown]
  - Therapeutic response decreased [Unknown]
